FAERS Safety Report 9046905 (Version 2)
Quarter: 2013Q4

REPORT INFORMATION
  Report Type: Report from Study
  Country: CA (occurrence: CA)
  Receive Date: 20130204
  Receipt Date: 20131014
  Transmission Date: 20140711
  Serious: Yes (Other)
  Sender: FDA-Public Use
  Company Number: CA-JNJFOC-20130113665

PATIENT
  Age: 38 Year
  Sex: Female
  Weight: 73 kg

DRUGS (3)
  1. REMICADE [Suspect]
     Indication: CROHN^S DISEASE
     Route: 042
     Dates: start: 201007
  2. INTRAVENOUS IRON [Suspect]
     Indication: PRODUCT USED FOR UNKNOWN INDICATION
     Route: 042
  3. AZATHIOPRINE [Concomitant]
     Dosage: START DATE: SINCE YEARS
     Route: 065

REACTIONS (2)
  - Spondylitis [Unknown]
  - Hypersensitivity [Recovered/Resolved]
